FAERS Safety Report 4403734-8 (Version None)
Quarter: 2004Q3

REPORT INFORMATION
  Report Type: 
  Country: None (occurrence: None)
  Receive Date: 20040719
  Receipt Date: 20040701
  Transmission Date: 20050211
  Serious: Yes (Hospitalization)
  Sender: FDA-Public Use
  Company Number: 138227USA

PATIENT
  Age: 13 Month
  Sex: Male
  Weight: 9 kg

DRUGS (2)
  1. AMOXICILLIN [Suspect]
     Indication: EAR INFECTION
     Dosage: 400 MILLIGRAM BID ORAL
     Route: 048
     Dates: start: 20040203, end: 20040207
  2. JOHNSON AND JOHNSON BABY POWDER [Suspect]

REACTIONS (5)
  - ANURIA [None]
  - DERMATITIS DIAPER [None]
  - HYPERSENSITIVITY [None]
  - PENILE SWELLING [None]
  - PHIMOSIS [None]
